FAERS Safety Report 8567368-6 (Version None)
Quarter: 2012Q3

REPORT INFORMATION
  Report Type: 
  Country: None (occurrence: None)
  Receive Date: 20120803
  Receipt Date: 20110912
  Transmission Date: 20120928
  Serious: No
  Sender: FDA-Public Use
  Company Number: US-ABBOTT-11P-163-0854418-00

PATIENT
  Sex: Female
  Weight: 86.26 kg

DRUGS (13)
  1. HUMOLOG INSULIN [Concomitant]
     Indication: DIABETES MELLITUS
     Dosage: UP TO 4 TIMES A DAY ACCORDING TO SLIDING SCALE
  2. ACTONEL [Concomitant]
     Indication: PRODUCT USED FOR UNKNOWN INDICATION
  3. BUPROPION HCL [Concomitant]
     Indication: DEPRESSION
  4. HYDRALAZINE HCL [Concomitant]
     Indication: PRODUCT USED FOR UNKNOWN INDICATION
  5. FISH OIL [Concomitant]
     Indication: BLOOD TRIGLYCERIDES INCREASED
  6. ISOSORBIDE [Concomitant]
     Indication: CARDIAC DISORDER
  7. LYRICA [Concomitant]
     Indication: NEUROPATHY PERIPHERAL
  8. LABETELOL [Concomitant]
     Indication: HYPERTENSION
  9. IRON PILL [Concomitant]
     Indication: PRODUCT USED FOR UNKNOWN INDICATION
  10. ASPIRIN [Concomitant]
     Indication: PRODUCT USED FOR UNKNOWN INDICATION
  11. NIASPAN [Suspect]
     Indication: BLOOD TRIGLYCERIDES INCREASED
     Dates: start: 20080101
  12. TORSEMIDE [Concomitant]
     Indication: DIURETIC THERAPY
  13. LANTUS [Concomitant]
     Indication: DIABETES MELLITUS
     Route: 058

REACTIONS (1)
  - MEDICATION RESIDUE [None]
